FAERS Safety Report 10151722 (Version 1)
Quarter: 2014Q2

REPORT INFORMATION
  Report Type: Spontaneous
  Country: US (occurrence: US)
  Receive Date: 20140505
  Receipt Date: 20140505
  Transmission Date: 20141212
  Serious: No
  Sender: FDA-Public Use
  Company Number: US-BIOGENIDEC-2014BI039426

PATIENT
  Age: 61 Year
  Sex: Female

DRUGS (1)
  1. TYSABRI [Suspect]
     Indication: MULTIPLE SCLEROSIS
     Route: 042
     Dates: start: 20091030

REACTIONS (5)
  - Hypoaesthesia [Unknown]
  - Paraesthesia [Recovered/Resolved]
  - Gait disturbance [Recovered/Resolved]
  - Tinnitus [Recovered/Resolved]
  - Malaise [Unknown]
